FAERS Safety Report 13167799 (Version 1)
Quarter: 2017Q1

REPORT INFORMATION
  Report Type: Spontaneous
  Country: US (occurrence: US)
  Receive Date: 20170131
  Receipt Date: 20170131
  Transmission Date: 20170428
  Serious: No
  Sender: FDA-Public Use
  Company Number: US-BAYER-2017-016684

PATIENT
  Sex: Female

DRUGS (2)
  1. CLARITIN ALLERGY + SINUS [Suspect]
     Active Substance: LORATADINE\PSEUDOEPHEDRINE SULFATE
     Dosage: UNK
     Route: 065
  2. CONTAC ALLERGY [Concomitant]

REACTIONS (2)
  - Off label use [Unknown]
  - Nasopharyngitis [Unknown]
